FAERS Safety Report 8189566-6 (Version None)
Quarter: 2012Q1

REPORT INFORMATION
  Report Type: 
  Country: None (occurrence: None)
  Receive Date: 20120307
  Receipt Date: 20120301
  Transmission Date: 20120608
  Serious: Yes (Death)
  Sender: FDA-Public Use
  Company Number: US-CELGENEUS-163-21880-12020311

PATIENT
  Sex: Male

DRUGS (5)
  1. REVLIMID [Suspect]
     Indication: MULTIPLE MYELOMA
     Dosage: 25 MILLIGRAM
     Route: 048
     Dates: start: 20110801, end: 20120101
  2. COUMADIN [Concomitant]
     Dosage: 6 MILLIGRAM
     Route: 048
     Dates: end: 20110122
  3. OXYCONTIN [Concomitant]
     Route: 048
     Dates: end: 20110122
  4. OXYCODONE HCL [Concomitant]
     Dosage: 2-3
     Route: 048
     Dates: end: 20110122
  5. SPIRIVA [Concomitant]
     Route: 055
     Dates: end: 20110122

REACTIONS (1)
  - MULTIPLE MYELOMA [None]
